FAERS Safety Report 6756270-8 (Version None)
Quarter: 2010Q2

REPORT INFORMATION
  Report Type: 
  Country: None (occurrence: None)
  Receive Date: 20100604
  Receipt Date: 20100525
  Transmission Date: 20101027
  Serious: Yes (Other)
  Sender: FDA-Public Use
  Company Number: MX-ROCHE-694775

PATIENT
  Sex: Female

DRUGS (4)
  1. METHOXY POLYETHYLENE GLYCOL-EPOETIN BETA [Suspect]
     Dosage: SINGLE DOSE.
     Route: 058
     Dates: start: 20100323, end: 20100323
  2. ASPIRIN [Concomitant]
     Dosage: START DATE: UNKNOWN, DOSE : UNKNOWN FREQUENCY: 1/DIA DRUG NAME:ASPIRIN PROTEC.
     Route: 048
  3. MICARDIS [Concomitant]
     Indication: HYPERTENSION
     Dosage: START DATE, FREQUENCY, DOSE: UNKNOWN
     Route: 048
  4. ATORVASTATIN [Concomitant]
     Dosage: START DATE: UNKNOWN.

REACTIONS (1)
  - HAEMOLYSIS [None]
